FAERS Safety Report 7109886-3 (Version None)
Quarter: 2010Q4

REPORT INFORMATION
  Report Type: 
  Country: None (occurrence: None)
  Receive Date: 20101116
  Receipt Date: 20101116
  Transmission Date: 20110411
  Serious: Yes (Life-Threatening)
  Sender: FDA-Public Use
  Company Number: None

PATIENT
  Age: 58 Year
  Sex: Female
  Weight: 47.6277 kg

DRUGS (2)
  1. HALOPERIDOL [Suspect]
  2. LORAZEPAM [Concomitant]

REACTIONS (2)
  - AGITATION [None]
  - BLOOD PRESSURE DECREASED [None]
